FAERS Safety Report 9119452 (Version 2)
Quarter: 2013Q1

REPORT INFORMATION
  Report Type: Spontaneous
  Country: US (occurrence: US)
  Receive Date: 20130207
  Receipt Date: 20130304
  Transmission Date: 20140127
  Serious: Yes (Other)
  Sender: FDA-Public Use
  Company Number: PHEH2011US013293

PATIENT
  Age: 49 Year
  Sex: Female
  Weight: 55.78 kg

DRUGS (11)
  1. GILENYA [Suspect]
     Indication: RELAPSING-REMITTING MULTIPLE SCLEROSIS
     Dosage: 0.5 MG, QD
     Route: 048
     Dates: start: 20110926
  2. BACLOFEN [Concomitant]
     Dosage: 10 MG, TID
     Route: 048
     Dates: start: 20110926
  3. EFFEXOR XR [Concomitant]
     Dosage: 150 MG, BID
     Route: 048
     Dates: start: 20110722
  4. GABAPENTIN [Concomitant]
     Dosage: 800 MG, TID
     Route: 048
     Dates: start: 20110722
  5. KLONOPIN [Concomitant]
     Dosage: 0.5 MG, Q12H
     Dates: start: 20110722
  6. LIPITOR [Concomitant]
     Dosage: 10 MG, UNK, DAILY
     Route: 048
     Dates: start: 20120926
  7. METFORMIN [Concomitant]
     Dosage: 850 MG, BID
     Route: 048
     Dates: start: 20110722
  8. NASONEX [Concomitant]
     Dosage: 2 SPRAYS IN EACH NOSTRILS ONCE DAILY
     Route: 045
     Dates: start: 20120926
  9. PROPRANOLOL [Concomitant]
     Dosage: 80 MG, BID
     Route: 048
     Dates: start: 20120202
  10. TOPIRAMATE [Concomitant]
     Dosage: 25 MG, UNK, 1-2 TAB BID
     Route: 048
     Dates: start: 20110926
  11. TRAMADOL [Concomitant]
     Dosage: 50 MG, UNK
     Route: 048
     Dates: start: 20111214

REACTIONS (2)
  - Head injury [Recovered/Resolved]
  - Fall [Recovered/Resolved]
